FAERS Safety Report 6126378-9 (Version None)
Quarter: 2009Q1

REPORT INFORMATION
  Report Type: 
  Country: None (occurrence: None)
  Receive Date: 20090318
  Receipt Date: 20090303
  Transmission Date: 20090719
  Serious: Yes (Hospitalization)
  Sender: FDA-Public Use
  Company Number: 09P-028-0560605-00

PATIENT
  Age: 4 Month
  Sex: Female
  Weight: 4.1 kg

DRUGS (5)
  1. SYNAGIS [Suspect]
     Indication: ANTIVIRAL PROPHYLAXIS
     Dosage: 42 MG; INTRAMUSCULAR
     Route: 030
     Dates: start: 20081215, end: 20081215
  2. RANITIDINE [Concomitant]
  3. PHENOBARBITAL [Concomitant]
  4. OXYGEN [Concomitant]
  5. CLONAZEPAM [Concomitant]

REACTIONS (4)
  - PNEUMONIA [None]
  - RESPIRATORY DISTRESS [None]
  - RESPIRATORY SYNCYTIAL VIRUS TEST POSITIVE [None]
  - VOMITING [None]
